FAERS Safety Report 22363684 (Version 8)
Quarter: 2023Q4

REPORT INFORMATION
  Report Type: Report from Study
  Country: CN (occurrence: CN)
  Receive Date: 20230525
  Receipt Date: 20231019
  Transmission Date: 20240110
  Serious: Yes (Hospitalization)
  Sender: FDA-Public Use
  Company Number: CN-PFIZER INC-PV202300087606

PATIENT
  Age: 66 Year
  Sex: Male
  Weight: 72 kg

DRUGS (14)
  1. ENCORAFENIB [Suspect]
     Active Substance: ENCORAFENIB
     Indication: Colon cancer
     Dosage: 300 MG, 1X/DAY (QD)
     Route: 048
     Dates: start: 20230418, end: 20230515
  2. CETUXIMAB [Suspect]
     Active Substance: CETUXIMAB
     Indication: Colon cancer
     Dosage: 935 MG, EVERY 2 WEEKS (Q2W)
     Route: 041
     Dates: start: 20230418, end: 20230619
  3. LEUCOVORIN [Suspect]
     Active Substance: LEUCOVORIN\LEUCOVORIN CALCIUM
     Indication: Colon cancer
     Dosage: 300 MG, Q2W
     Route: 041
     Dates: start: 20230418, end: 20230619
  4. FLUOROURACIL [Suspect]
     Active Substance: FLUOROURACIL
     Indication: Colon cancer
     Dosage: 300 MG, Q2W
     Route: 040
     Dates: start: 20230418, end: 20230619
  5. FLUOROURACIL [Suspect]
     Active Substance: FLUOROURACIL
     Dosage: 3000 MG, Q2W
     Route: 041
     Dates: start: 20230418, end: 20230616
  6. OXALIPLATIN [Suspect]
     Active Substance: OXALIPLATIN
     Indication: Colon cancer
     Dosage: 100 MG, Q2W
     Route: 042
     Dates: start: 20230418, end: 20230619
  7. METOPROLOL SUCCINATE [Concomitant]
     Active Substance: METOPROLOL SUCCINATE
     Indication: Hypertension
     Dosage: 47.5 MG, 1X/DAY, SUSTAINED RELEASE TABLETS, LONG-TERM CONCOMITANT MEDICATION
     Route: 048
     Dates: start: 1991
  8. SITAGLIPTIN PHOSPHATE [Concomitant]
     Active Substance: SITAGLIPTIN PHOSPHATE
     Indication: Diabetes mellitus
     Dosage: 100 MG, 1X/DAY, LONG-TERM CONCOMITANT MEDICATION
     Route: 048
     Dates: start: 2003
  9. FENOFIBRATE [Concomitant]
     Active Substance: FENOFIBRATE
     Indication: Hyperlipidaemia
     Dosage: 0.2 G, 1X/DAY, LONG-TERM CONCOMITANT MEDICATION
     Route: 048
     Dates: start: 2003
  10. GLIMEPIRIDE [Concomitant]
     Active Substance: GLIMEPIRIDE
     Indication: Diabetes mellitus
     Dosage: 4 MG, 1X/DAY, LONG-TERM CONCOMITANT MEDICATION
     Route: 048
     Dates: start: 2003
  11. METFORMIN HYDROCHLORIDE [Concomitant]
     Active Substance: METFORMIN HYDROCHLORIDE
     Indication: Diabetes mellitus
     Dosage: 1 G
     Route: 048
     Dates: start: 2005
  12. LOSARTAN POTASSIUM [Concomitant]
     Active Substance: LOSARTAN POTASSIUM
     Indication: Hypertension
     Dosage: 100 MG
     Route: 048
     Dates: start: 2020
  13. AMLODIPINE BESYLATE [Concomitant]
     Active Substance: AMLODIPINE BESYLATE
     Indication: Hypertension
     Dosage: 10 MG, 1X/DAY
     Route: 048
     Dates: start: 2010
  14. FEBUXOSTAT [Concomitant]
     Active Substance: FEBUXOSTAT
     Dosage: UNK
     Route: 048

REACTIONS (1)
  - Acute kidney injury [Recovered/Resolved]

NARRATIVE: CASE EVENT DATE: 20230515
